FAERS Safety Report 9473465 (Version 2)
Quarter: 2013Q3

REPORT INFORMATION
  Report Type: Spontaneous
  Country: US (occurrence: US)
  Receive Date: 20130823
  Receipt Date: 20130823
  Transmission Date: 20140515
  Serious: No
  Sender: FDA-Public Use
  Company Number: US-BRISTOL-MYERS SQUIBB COMPANY-19013820

PATIENT
  Age: 63 Year
  Sex: Female
  Weight: 59.86 kg

DRUGS (7)
  1. SPRYCEL [Suspect]
     Indication: CHRONIC MYELOID LEUKAEMIA
     Dosage: DRUG INTERRUPTED FOR 1WK.?INTERRUPTED ON 17JUN2013
     Route: 048
     Dates: start: 20130511
  2. CENTRUM [Concomitant]
  3. SYNTHROID [Concomitant]
  4. ATACAND [Concomitant]
  5. FISH OIL [Concomitant]
  6. VYTORIN [Concomitant]
  7. CALCIUM + VITAMIN D [Concomitant]

REACTIONS (10)
  - Headache [Not Recovered/Not Resolved]
  - Pyrexia [Not Recovered/Not Resolved]
  - Influenza like illness [Not Recovered/Not Resolved]
  - Eye irritation [Not Recovered/Not Resolved]
  - Chills [Not Recovered/Not Resolved]
  - Flushing [Not Recovered/Not Resolved]
  - Nausea [Not Recovered/Not Resolved]
  - Fatigue [Not Recovered/Not Resolved]
  - Haemoglobin decreased [Not Recovered/Not Resolved]
  - Platelet count decreased [Not Recovered/Not Resolved]
